FAERS Safety Report 10382863 (Version 1)
Quarter: 2014Q3

REPORT INFORMATION
  Report Type: Spontaneous
  Country: US (occurrence: US)
  Receive Date: 20140813
  Receipt Date: 20140813
  Transmission Date: 20150326
  Serious: No
  Sender: FDA-Public Use
  Company Number: US-SA-2014SA001102

PATIENT
  Age: 28 Year
  Sex: Male

DRUGS (1)
  1. FABRAZYME [Suspect]
     Active Substance: AGALSIDASE BETA
     Indication: FABRY^S DISEASE
     Dosage: FIRST SHIP DATE: 16-OCT-2003
     Route: 042

REACTIONS (3)
  - Headache [Unknown]
  - Palpitations [Unknown]
  - Chills [Unknown]

NARRATIVE: CASE EVENT DATE: 201312
